FAERS Safety Report 7260579-1 (Version None)
Quarter: 2011Q1

REPORT INFORMATION
  Report Type: 
  Country: None (occurrence: None)
  Receive Date: 20110130
  Receipt Date: 20101221
  Transmission Date: 20110831
  Serious: No
  Sender: FDA-Public Use
  Company Number: US-ABBOTT-10P-163-0692917-00

PATIENT
  Sex: Female
  Weight: 54.026 kg

DRUGS (1)
  1. HUMIRA [Suspect]
     Indication: CROHN'S DISEASE
     Route: 058
     Dates: start: 20090701, end: 20100701

REACTIONS (5)
  - DIARRHOEA [None]
  - HAEMATOCHEZIA [None]
  - ABDOMINAL PAIN [None]
  - NAUSEA [None]
  - ABDOMINAL DISCOMFORT [None]
